FAERS Safety Report 8509561-4 (Version None)
Quarter: 2012Q3

REPORT INFORMATION
  Report Type: 
  Country: None (occurrence: None)
  Receive Date: 20120713
  Receipt Date: 20120709
  Transmission Date: 20120928
  Serious: Yes (Hospitalization)
  Sender: FDA-Public Use
  Company Number: DK-BRISTOL-MYERS SQUIBB COMPANY-16753667

PATIENT
  Age: 42 Year
  Sex: Female

DRUGS (12)
  1. ONDANSETRON [Concomitant]
     Route: 048
  2. VOGALENE [Concomitant]
     Route: 048
     Dates: start: 20120521
  3. POLYETHYLENE GLYCOL [Concomitant]
     Route: 048
     Dates: start: 20120521
  4. LAXOBERAL [Concomitant]
     Route: 048
  5. GABAPENTIN [Concomitant]
     Route: 048
     Dates: start: 20120524, end: 20120711
  6. IPILIMUMAB [Suspect]
     Indication: METASTATIC MALIGNANT MELANOMA
     Route: 042
     Dates: start: 20120524
  7. MAGNESIUM SULFATE [Concomitant]
     Route: 048
  8. IMODIUM [Concomitant]
     Route: 048
     Dates: start: 20120608
  9. OXYCONTIN [Concomitant]
     Dosage: UNK-22MAY12 23MAY12-ONG
     Route: 048
  10. AMITRIPTYLINE HCL [Concomitant]
     Route: 048
     Dates: start: 20120523, end: 20120606
  11. PREDNISOLONE [Concomitant]
     Dosage: 50 MG OD 06JUN12 TO 13JUN12; 25 MG 14JU12 TO 28JUN12
     Route: 048
     Dates: start: 20120606, end: 20120628
  12. ACETAMINOPHEN [Concomitant]
     Route: 048
     Dates: end: 20120711

REACTIONS (1)
  - HEADACHE [None]
